FAERS Safety Report 20871998 (Version 1)
Quarter: 2022Q2

REPORT INFORMATION
  Report Type: Report from Study
  Country: IT (occurrence: IT)
  Receive Date: 20220525
  Receipt Date: 20220525
  Transmission Date: 20220721
  Serious: Yes (Hospitalization)
  Sender: FDA-Public Use
  Company Number: None

PATIENT
  Age: 44 Year
  Sex: Male

DRUGS (5)
  1. QUETIAPINE [Suspect]
     Active Substance: QUETIAPINE
     Indication: Personality disorder
     Dosage: 24000 MILLIGRAM, TOTAL
     Route: 048
     Dates: start: 20220321, end: 20220321
  2. Valdorm [Concomitant]
     Indication: Personality disorder
     Dosage: 30 MILLIGRAM
     Route: 048
  3. Tavor [Concomitant]
     Indication: Personality disorder
     Dosage: 7.5 MILLIGRAM
     Route: 048
  4. ARIPIPRAZOLE [Concomitant]
     Active Substance: ARIPIPRAZOLE
     Indication: Personality disorder
     Dosage: 10 MILLIGRAM
     Route: 048
  5. GABAPENTIN [Concomitant]
     Active Substance: GABAPENTIN
     Indication: Personality disorder
     Dosage: 800 MILLIGRAM
     Route: 048

REACTIONS (2)
  - Sopor [Recovering/Resolving]
  - Drug abuse [Recovering/Resolving]

NARRATIVE: CASE EVENT DATE: 20220321
